FAERS Safety Report 7772602-6 (Version None)
Quarter: 2011Q3

REPORT INFORMATION
  Report Type: 
  Country: None (occurrence: None)
  Receive Date: 20110922
  Receipt Date: 20110111
  Transmission Date: 20111222
  Serious: No
  Sender: FDA-Public Use
  Company Number: US-ASTRAZENECA-2011SE02053

PATIENT
  Age: 66 Year
  Sex: Female
  Weight: 77.6 kg

DRUGS (3)
  1. SEROQUEL XR [Suspect]
     Indication: SLEEP DISORDER
     Route: 048
     Dates: start: 20101201
  2. CELEXA [Concomitant]
  3. MELATONIN [Concomitant]
     Indication: SLEEP DISORDER

REACTIONS (3)
  - DRUG INEFFECTIVE FOR UNAPPROVED INDICATION [None]
  - INSOMNIA [None]
  - AGORAPHOBIA [None]
